FAERS Safety Report 5196421-2 (Version None)
Quarter: 2006Q4

REPORT INFORMATION
  Report Type: 
  Country: None (occurrence: None)
  Receive Date: 20061226
  Receipt Date: 20061212
  Transmission Date: 20070319
  Serious: Yes (Hospitalization)
  Sender: FDA-Public Use
  Company Number: 2006002330

PATIENT
  Sex: Male

DRUGS (2)
  1. TARCEVA [Suspect]
     Indication: ADENOCARCINOMA
     Dosage: ORAL
     Route: 048
     Dates: start: 20061106
  2. TARCEVA [Suspect]
     Indication: LUNG CARCINOMA CELL TYPE UNSPECIFIED STAGE IV
     Dosage: ORAL
     Route: 048
     Dates: start: 20061106

REACTIONS (4)
  - BURNING SENSATION [None]
  - DIARRHOEA [None]
  - ERYTHEMA [None]
  - VISUAL ACUITY REDUCED [None]
